FAERS Safety Report 20373911 (Version 1)
Quarter: 2022Q1

REPORT INFORMATION
  Report Type: Spontaneous
  Country: US (occurrence: None)
  Receive Date: 20220124
  Receipt Date: 20220124
  Transmission Date: 20220423
  Serious: Yes (Hospitalization)
  Sender: FDA-Public Use
  Company Number: None

PATIENT
  Age: 2 Year
  Sex: Male
  Weight: 9.4 kg

DRUGS (23)
  1. REMDESIVIR [Suspect]
     Active Substance: REMDESIVIR
     Indication: COVID-19
     Dosage: OTHER FREQUENCY : ONCE;?
     Route: 042
     Dates: start: 20220116, end: 20220116
  2. REMDESIVIR [Suspect]
     Active Substance: REMDESIVIR
     Indication: COVID-19
     Dosage: FREQUENCY : DAILY;?
     Route: 042
     Dates: start: 20220117, end: 20220118
  3. TOBRAMYCIN [Concomitant]
     Active Substance: TOBRAMYCIN
     Dates: start: 20220115, end: 20220118
  4. LIDOCAINE [Concomitant]
     Active Substance: LIDOCAINE
     Dates: start: 20220114, end: 20220118
  5. PHENOBARBITAL [Concomitant]
     Active Substance: PHENOBARBITAL
     Dates: start: 20220115, end: 20220118
  6. PHENOBARBITAL [Concomitant]
     Active Substance: PHENOBARBITAL
     Dates: start: 20220120, end: 20220120
  7. Dexmedetomidine Titration Drip [Concomitant]
     Dates: start: 20220115, end: 20220118
  8. LACTULOSE [Concomitant]
     Active Substance: LACTULOSE
     Dates: start: 20220115, end: 20220118
  9. LACTULOSE [Concomitant]
     Active Substance: LACTULOSE
     Dates: start: 20220120, end: 20220120
  10. OMEPRAZOLE [Concomitant]
     Active Substance: OMEPRAZOLE
     Dates: start: 20220115, end: 20220118
  11. OMEPRAZOLE [Concomitant]
     Active Substance: OMEPRAZOLE
     Dates: start: 20220120, end: 20220120
  12. PANTOPRAZOLE [Concomitant]
     Active Substance: PANTOPRAZOLE
     Dates: start: 20220115, end: 20220118
  13. BUDESONIDE [Concomitant]
     Active Substance: BUDESONIDE
     Dates: start: 20220115, end: 20220118
  14. BUDESONIDE [Concomitant]
     Active Substance: BUDESONIDE
     Dates: start: 20220120, end: 20220120
  15. VITAMIN D3 [Concomitant]
     Active Substance: CHOLECALCIFEROL
     Dates: start: 20220115, end: 20220118
  16. VITAMIN D3 [Concomitant]
     Active Substance: CHOLECALCIFEROL
     Dates: start: 20220120, end: 20220121
  17. ACETYLCYSTEINE [Concomitant]
     Active Substance: ACETYLCYSTEINE
     Dates: start: 20220115, end: 20220118
  18. ACETYLCYSTEINE [Concomitant]
     Active Substance: ACETYLCYSTEINE
     Dates: start: 20220120, end: 20220120
  19. CETIRIZINE [Concomitant]
     Active Substance: CETIRIZINE HYDROCHLORIDE
     Dates: start: 20220120, end: 20220120
  20. IPRATROPIUM [Concomitant]
     Active Substance: IPRATROPIUM
     Dates: start: 20220120, end: 20220120
  21. LEVALBUTEROL [Concomitant]
     Active Substance: LEVALBUTEROL
     Dates: start: 20220115, end: 20220118
  22. LEVALBUTEROL [Concomitant]
     Active Substance: LEVALBUTEROL
     Dates: start: 20220120, end: 20220120
  23. DORNASE ALFA [Concomitant]
     Active Substance: DORNASE ALFA
     Dates: start: 20220115, end: 20220118

REACTIONS (1)
  - Tracheal haemorrhage [None]

NARRATIVE: CASE EVENT DATE: 20220120
